FAERS Safety Report 8893071 (Version 1)
Quarter: 2012Q4

REPORT INFORMATION
  Report Type: 
  Country: US (occurrence: US)
  Receive Date: 20121107
  Receipt Date: 20121107
  Transmission Date: 20130627
  Serious: No
  Sender: FDA-Public Use
  Company Number: US-AMGEN-USASP2011052291

PATIENT
  Age: 43 Year

DRUGS (11)
  1. ENBREL [Suspect]
     Indication: PRODUCT USED FOR UNKNOWN INDICATION
     Dosage: 50 mg, qwk
     Route: 058
  2. HYZAAR [Concomitant]
     Dosage: 12.5 IU, UNK
  3. AMBIEN [Concomitant]
     Dosage: 10 mg, UNK
  4. PREMARIN [Concomitant]
     Dosage: .3 mg, UNK
  5. LYRICA [Concomitant]
     Dosage: 100 mg, UNK
  6. ATENOLOL [Concomitant]
     Dosage: 100 mg, UNK
  7. OMEPRAZOLE [Concomitant]
     Dosage: 10 mg, UNK
  8. VITAMIN B12                        /00056201/ [Concomitant]
     Dosage: 1000 mg, UNK
  9. IBUPROFEN [Concomitant]
     Dosage: 200 mg, UNK
  10. IRON [Concomitant]
  11. VITAMIN D /00107901/ [Concomitant]
     Dosage: 1000 IU, UNK

REACTIONS (3)
  - Injection site reaction [Unknown]
  - Injection site erythema [Unknown]
  - Injection site pain [Unknown]
